FAERS Safety Report 17483203 (Version 1)
Quarter: 2020Q1

REPORT INFORMATION
  Report Type: Spontaneous
  Country: US (occurrence: US)
  Receive Date: 20200228
  Receipt Date: 20200228
  Transmission Date: 20200409
  Serious: Yes (Death)
  Sender: FDA-Public Use
  Company Number: None

PATIENT
  Age: 51 Year
  Sex: Female

DRUGS (3)
  1. PREDNISONE (20-40MG DAILY 10 DAYS PRIOR TO PJP DIAGNOSIS) [Concomitant]
  2. ENTOCORT EC [Suspect]
     Active Substance: BUDESONIDE
     Indication: HEPATITIS
     Route: 048
  3. AZATHIOPRINE (50-100MG DAILY) [Concomitant]

REACTIONS (2)
  - Pneumocystis jirovecii pneumonia [None]
  - Cushingoid [None]
